FAERS Safety Report 4951117-4 (Version None)
Quarter: 2006Q1

REPORT INFORMATION
  Report Type: 
  Country: None (occurrence: None)
  Receive Date: 20060322
  Receipt Date: 20050706
  Transmission Date: 20060701
  Serious: Yes (Hospitalization, Disabling)
  Sender: FDA-Public Use
  Company Number: US-MERCK-0507USA00914

PATIENT
  Age: 48 Year
  Sex: Female
  Weight: 91 kg

DRUGS (4)
  1. VIOXX [Suspect]
     Indication: OSTEOARTHRITIS
     Route: 048
     Dates: start: 19990101, end: 20040901
  2. ZOLOFT [Concomitant]
     Route: 065
  3. ZYRTEC [Concomitant]
     Route: 065
  4. VICODIN [Concomitant]
     Route: 065

REACTIONS (8)
  - BACK INJURY [None]
  - BLOOD PRESSURE INCREASED [None]
  - HEPATITIS C [None]
  - INJURY [None]
  - OSTEOMYELITIS [None]
  - PAIN [None]
  - RECTAL HAEMORRHAGE [None]
  - RENAL DISORDER [None]
